FAERS Safety Report 6787278-4 (Version None)
Quarter: 2010Q2

REPORT INFORMATION
  Report Type: 
  Country: None (occurrence: None)
  Receive Date: 20100623
  Receipt Date: 20100610
  Transmission Date: 20101027
  Serious: Yes (Other)
  Sender: FDA-Public Use
  Company Number: NL-ELI_LILLY_AND_COMPANY-NL201003001999

PATIENT
  Sex: Male

DRUGS (5)
  1. CIALIS [Suspect]
     Dosage: 20 MG, UNKNOWN
     Route: 065
     Dates: start: 20040101, end: 20100401
  2. ACENOCOUMAROL [Interacting]
     Indication: TACHYARRHYTHMIA
     Dosage: UNK, UNKNOWN
     Route: 065
  3. RANITIDINE [Concomitant]
     Dosage: 300 MG, UNK
  4. COVERSYL [Concomitant]
     Indication: HYPERTENSION
     Dosage: 5 MG, UNK
  5. COSOPT [Concomitant]
     Indication: GLAUCOMA

REACTIONS (3)
  - COAGULOPATHY [None]
  - DRUG INTERACTION [None]
  - INTERNATIONAL NORMALISED RATIO INCREASED [None]
